FAERS Safety Report 15299142 (Version 1)
Quarter: 2018Q3

REPORT INFORMATION
  Report Type: Spontaneous
  Country: FR (occurrence: FR)
  Receive Date: 20180821
  Receipt Date: 20180821
  Transmission Date: 20181010
  Serious: Yes (Life-Threatening, Hospitalization)
  Sender: FDA-Public Use
  Company Number: FR-TEVA-2018-FR-944258

PATIENT
  Age: 27 Year
  Sex: Male

DRUGS (3)
  1. ZOPICLONE [Suspect]
     Active Substance: ZOPICLONE
     Dosage: 105 MILLIGRAM DAILY;
     Route: 048
  2. DIAZEPAM. [Suspect]
     Active Substance: DIAZEPAM
     Dosage: 800 MILLIGRAM DAILY;
     Route: 048
  3. TERCIAN [Suspect]
     Active Substance: CYAMEMAZINE
     Dosage: 750 MILLIGRAM DAILY;
     Route: 048

REACTIONS (5)
  - Drug abuse [Not Recovered/Not Resolved]
  - Coma [Recovered/Resolved]
  - Tachycardia [Recovered/Resolved]
  - Alcohol abuse [Not Recovered/Not Resolved]
  - Intentional overdose [Recovered/Resolved]

NARRATIVE: CASE EVENT DATE: 201711
